FAERS Safety Report 5454650-4 (Version None)
Quarter: 2007Q3

REPORT INFORMATION
  Report Type: 
  Country: None (occurrence: None)
  Receive Date: 20070917
  Receipt Date: 20060912
  Transmission Date: 20080115
  Serious: Yes (Other)
  Sender: FDA-Public Use
  Company Number: US-ASTRAZENECA-2006UW15601

PATIENT
  Age: 48 Year
  Sex: Female

DRUGS (7)
  1. SEROQUEL [Suspect]
     Indication: PSYCHOTIC DISORDER
     Route: 048
     Dates: start: 20021011, end: 20060724
  2. WELLBUTRIN [Concomitant]
     Indication: DEPRESSION
     Route: 048
  3. HALDOL [Concomitant]
     Indication: PSYCHOTIC DISORDER
     Route: 048
  4. CELEXA [Concomitant]
     Indication: PSYCHOTIC DISORDER
     Route: 048
     Dates: start: 20050117, end: 20050515
  5. LEXAPRO [Concomitant]
     Indication: DEPRESSION
     Route: 048
  6. ZOCOR [Concomitant]
     Route: 048
  7. PAMELOR [Concomitant]
     Indication: DEPRESSION
     Route: 048
     Dates: start: 19961017, end: 20040119

REACTIONS (2)
  - BLOOD GLUCOSE INCREASED [None]
  - HYPERLIPIDAEMIA [None]
